FAERS Safety Report 7687385-8 (Version None)
Quarter: 2011Q3

REPORT INFORMATION
  Report Type: 
  Country: None (occurrence: None)
  Receive Date: 20110816
  Receipt Date: 20110804
  Transmission Date: 20111222
  Serious: No
  Sender: FDA-Public Use
  Company Number: US-BAYER-2011-070185

PATIENT

DRUGS (1)
  1. ULTRAVIST 150 [Suspect]
     Dosage: 100 ML, UNK

REACTIONS (2)
  - SNEEZING [None]
  - URTICARIA [None]
